FAERS Safety Report 4390084-1 (Version None)
Quarter: 2004Q3

REPORT INFORMATION
  Report Type: 
  Country: None (occurrence: None)
  Receive Date: 20040706
  Receipt Date: 20040603
  Transmission Date: 20050211
  Serious: Yes (Death)
  Sender: FDA-Public Use
  Company Number: KP-AMGEN-US079788

PATIENT
  Sex: Female
  Weight: 59 kg

DRUGS (5)
  1. ENBREL [Suspect]
     Indication: GRAFT VERSUS HOST DISEASE
     Route: 058
     Dates: start: 20040219, end: 20040226
  2. CYCLOSPORINE [Concomitant]
     Route: 048
  3. METHYLPREDNISOLONE [Concomitant]
     Route: 042
  4. ACYCLOVIR [Concomitant]
     Route: 042
  5. ITRACONAZOLE [Concomitant]

REACTIONS (1)
  - HAEMORRHAGE INTRACRANIAL [None]
